FAERS Safety Report 8789936 (Version 1)
Quarter: 2012Q4

REPORT INFORMATION
  Report Type: 
  Country: US (occurrence: US)
  Receive Date: 20120917
  Receipt Date: 20120917
  Transmission Date: 20130627
  Serious: Yes (Hospitalization)
  Sender: FDA-Public Use
  Company Number: US-JNJFOC-20120903544

PATIENT
  Sex: Male
  Weight: 90.72 kg

DRUGS (5)
  1. HALDOL DECONATE [Suspect]
     Indication: SCHIZOPHRENIA
     Route: 030
     Dates: start: 2012
  2. HALDOL [Suspect]
     Indication: SCHIZOPHRENIA
     Route: 048
     Dates: start: 2012
  3. SEROQUEL [Suspect]
     Indication: SCHIZOPHRENIA
     Route: 048
     Dates: start: 2012, end: 20120816
  4. DEPAKENE [Suspect]
     Indication: SCHIZOPHRENIA
     Route: 048
     Dates: start: 2012
  5. COGENTIN [Suspect]
     Indication: SCHIZOPHRENIA
     Route: 048
     Dates: start: 2012

REACTIONS (2)
  - Drug ineffective [Not Recovered/Not Resolved]
  - Disturbance in social behaviour [Unknown]
